FAERS Safety Report 6694977-1 (Version None)
Quarter: 2010Q2

REPORT INFORMATION
  Report Type: 
  Country: None (occurrence: None)
  Receive Date: 20100423
  Receipt Date: 20100414
  Transmission Date: 20101027
  Serious: Yes (Other)
  Sender: FDA-Public Use
  Company Number: US-AMGEN-QUU406297

PATIENT
  Sex: Female

DRUGS (3)
  1. NPLATE [Suspect]
     Indication: IDIOPATHIC THROMBOCYTOPENIC PURPURA
     Dates: start: 20091028, end: 20091104
  2. CORTICOSTEROIDS [Concomitant]
     Dates: start: 20090908
  3. IMMU-G [Concomitant]
     Dates: start: 20090909

REACTIONS (3)
  - DRUG INEFFECTIVE [None]
  - EMBOLISM [None]
  - THROMBOSIS [None]
